FAERS Safety Report 8273116-X (Version None)
Quarter: 2012Q2

REPORT INFORMATION
  Report Type: 
  Country: None (occurrence: None)
  Receive Date: 20120411
  Receipt Date: 20120405
  Transmission Date: 20120825
  Serious: Yes (Other)
  Sender: FDA-Public Use
  Company Number: US-PFIZER INC-2012087183

PATIENT
  Sex: Male
  Weight: 88.435 kg

DRUGS (6)
  1. VERAPAMIL [Concomitant]
     Dosage: 240 MG, DAILY
  2. HYDROCHLOROTHIAZIDE [Concomitant]
     Dosage: 12.5 MG, DAILY
  3. VITAMIN B6 [Concomitant]
     Dosage: UNK
  4. SUTENT [Suspect]
     Indication: METASTATIC RENAL CELL CARCINOMA
     Dosage: 50 MG, UNK
     Dates: start: 20110901
  5. DIOVAN [Concomitant]
     Dosage: 320 MG, DAILY
  6. IRON [Concomitant]

REACTIONS (7)
  - PAIN IN EXTREMITY [None]
  - PAIN [None]
  - THYROID FUNCTION TEST ABNORMAL [None]
  - GAIT DISTURBANCE [None]
  - LUNG DISORDER [None]
  - PNEUMONIA [None]
  - HEADACHE [None]
